FAERS Safety Report 4792803-9 (Version None)
Quarter: 2005Q4

REPORT INFORMATION
  Report Type: 
  Country: None (occurrence: None)
  Receive Date: 20051010
  Receipt Date: 20050929
  Transmission Date: 20060501
  Serious: Yes (Hospitalization)
  Sender: FDA-Public Use
  Company Number: US-MERCK-0510USA00690

PATIENT
  Age: 39 Year
  Sex: Female
  Weight: 61 kg

DRUGS (9)
  1. VIOXX [Suspect]
     Indication: BACK PAIN
     Route: 048
  2. LORTAB [Concomitant]
     Route: 065
  3. CELEXA [Concomitant]
     Route: 065
  4. NEURONTIN [Concomitant]
     Route: 065
  5. CELEBREX [Concomitant]
     Route: 065
  6. ASPIRIN [Concomitant]
     Route: 065
  7. TOPROL-XL [Concomitant]
     Route: 065
  8. TIAZAC [Concomitant]
     Route: 065
  9. BACLOFEN [Concomitant]
     Route: 065

REACTIONS (3)
  - ANAEMIA [None]
  - BLOOD GLUCOSE ABNORMAL [None]
  - MYOCARDIAL INFARCTION [None]
